FAERS Safety Report 9694759 (Version 5)
Quarter: 2014Q3

REPORT INFORMATION
  Report Type: Report from Study
  Country: US (occurrence: US)
  Receive Date: 20131119
  Receipt Date: 20140923
  Transmission Date: 20150326
  Serious: Yes (Hospitalization)
  Sender: FDA-Public Use
  Company Number: US-BIOGENIDEC-2013BI109333

PATIENT
  Age: 47 Year
  Sex: Female

DRUGS (4)
  1. TYSABRI [Suspect]
     Active Substance: NATALIZUMAB
     Indication: MULTIPLE SCLEROSIS
     Route: 042
     Dates: start: 20070227, end: 20131122
  2. RITUXIMAB [Concomitant]
     Active Substance: RITUXIMAB
     Dates: start: 20140115, end: 20140128
  3. ACTH [Concomitant]
     Active Substance: CORTICOTROPIN
     Dates: start: 20131212, end: 20131217
  4. METHYLPREDNISOLONE [Concomitant]
     Active Substance: METHYLPREDNISOLONE
     Route: 042
     Dates: start: 20131025, end: 20131028

REACTIONS (4)
  - Progressive multifocal leukoencephalopathy [Unknown]
  - Pain in extremity [Unknown]
  - Convulsion [Not Recovered/Not Resolved]
  - Muscular weakness [Unknown]

NARRATIVE: CASE EVENT DATE: 201310
